FAERS Safety Report 18659954 (Version 1)
Quarter: 2020Q4

REPORT INFORMATION
  Report Type: Spontaneous
  Country: AT (occurrence: AT)
  Receive Date: 20201224
  Receipt Date: 20201224
  Transmission Date: 20210114
  Serious: Yes (Other)
  Sender: FDA-Public Use
  Company Number: AT-PFIZER INC-2020499865

PATIENT
  Age: 41 Year
  Sex: Female

DRUGS (11)
  1. TEMESTA (LORAZEPAM) [Suspect]
     Active Substance: LORAZEPAM
     Dosage: 2.5 MG
     Dates: start: 20200515, end: 20200527
  2. CONCOR [Suspect]
     Active Substance: BISOPROLOL FUMARATE
     Dosage: 5 MG
     Dates: start: 20200423, end: 20200527
  3. TRIUMEQ [Suspect]
     Active Substance: ABACAVIR SULFATE\DOLUTEGRAVIR SODIUM\LAMIVUDINE
     Dosage: 600 MG
  4. TEMESTA (LORAZEPAM) [Suspect]
     Active Substance: LORAZEPAM
     Dosage: 5 MG
     Dates: start: 20200423, end: 20200514
  5. RISPERDAL [Suspect]
     Active Substance: RISPERIDONE
     Indication: SCHIZOAFFECTIVE DISORDER
     Dosage: 4 MG
     Dates: start: 20200423, end: 20200429
  6. DEPAKINE [VALPROIC ACID] [Suspect]
     Active Substance: VALPROIC ACID
     Dosage: 2.1 G
     Dates: start: 20200517, end: 20200526
  7. RISPERDAL [Suspect]
     Active Substance: RISPERIDONE
     Dosage: 6 MG
     Dates: start: 20200513
  8. TRIUMEQ [Suspect]
     Active Substance: ABACAVIR SULFATE\DOLUTEGRAVIR SODIUM\LAMIVUDINE
     Dosage: 300 MG
  9. RISPERDAL [Suspect]
     Active Substance: RISPERIDONE
     Dosage: 5 MG
     Dates: start: 20200430, end: 20200512
  10. TRIUMEQ [Suspect]
     Active Substance: ABACAVIR SULFATE\DOLUTEGRAVIR SODIUM\LAMIVUDINE
     Indication: HIV INFECTION
     Dosage: 50 MG
     Dates: start: 20200423, end: 20200527
  11. DEPAKINE [VALPROIC ACID] [Suspect]
     Active Substance: VALPROIC ACID
     Dosage: 1.8 G
     Dates: start: 20200501, end: 20200516

REACTIONS (2)
  - Galactorrhoea [Recovering/Resolving]
  - Hyperprolactinaemia [Not Recovered/Not Resolved]

NARRATIVE: CASE EVENT DATE: 2020
